FAERS Safety Report 6702762-7 (Version None)
Quarter: 2010Q2

REPORT INFORMATION
  Report Type: 
  Country: None (occurrence: None)
  Receive Date: 20100429
  Receipt Date: 20100422
  Transmission Date: 20101027
  Serious: Yes (Hospitalization)
  Sender: FDA-Public Use
  Company Number: PHHO2010KR06046

PATIENT
  Sex: Male
  Weight: 75.75 kg

DRUGS (13)
  1. AFINITOR [Suspect]
     Indication: SMALL CELL LUNG CANCER STAGE UNSPECIFIED
     Dosage: 5 MG
     Route: 048
     Dates: start: 20100225, end: 20100417
  2. AFINITOR [Suspect]
     Dosage: UNK
     Route: 048
     Dates: start: 20100419
  3. PACLITAXEL COMP-PAC+ [Suspect]
     Indication: SMALL CELL LUNG CANCER STAGE UNSPECIFIED
     Dosage: 292 MG, Q3WKS
     Route: 042
     Dates: start: 20100225, end: 20100405
  4. ITOPRIDE [Concomitant]
     Indication: PROPHYLAXIS
     Dosage: UNK
     Dates: start: 20100304
  5. CHLORHEXIDINE GLUCONATE [Concomitant]
     Indication: PROPHYLAXIS
     Dosage: UNK
     Dates: start: 20100304
  6. HYDROXYZINE [Concomitant]
     Indication: PROPHYLAXIS
     Dosage: UNK
     Dates: start: 20100331
  7. CODEINE SULFATE [Concomitant]
     Indication: PAIN
  8. DESONIDE [Concomitant]
     Indication: PROPHYLAXIS
     Dosage: UNK
     Dates: start: 20100331
  9. MAGNESIUM OXIDE [Concomitant]
     Indication: PROPHYLAXIS
     Dosage: UNK
     Dates: start: 20100304
  10. RANITIDINE [Concomitant]
     Indication: CHEMOTHERAPY
     Dosage: UNK
     Dates: start: 20100225, end: 20100405
  11. SOLU-CORTEF [Concomitant]
     Indication: CHEMOTHERAPY
     Dosage: UNK
     Dates: start: 20100225
  12. PALONOSETRON [Concomitant]
     Indication: CHEMOTHERAPY
     Dosage: UNK
     Dates: start: 20100225
  13. CHLORPHENIRAMINE MALEATE [Concomitant]
     Indication: CHEMOTHERAPY
     Dosage: UNK
     Dates: start: 20100225

REACTIONS (3)
  - FEBRILE NEUTROPENIA [None]
  - NEUTROPENIA [None]
  - PYREXIA [None]
